FAERS Safety Report 24001230 (Version 1)
Quarter: 2024Q2

REPORT INFORMATION
  Report Type: Spontaneous
  Country: DE (occurrence: DE)
  Receive Date: 20240621
  Receipt Date: 20240621
  Transmission Date: 20240716
  Serious: Yes (Other)
  Sender: FDA-Public Use
  Company Number: DE-BEH-2024173767

PATIENT
  Age: 4 Month
  Sex: Male

DRUGS (4)
  1. HUMAN IMMUNOGLOBULIN G [Suspect]
     Active Substance: HUMAN IMMUNOGLOBULIN G
     Indication: Aspergillus infection
     Dosage: UNK
     Route: 042
  2. HUMAN IMMUNOGLOBULIN G [Suspect]
     Active Substance: HUMAN IMMUNOGLOBULIN G
     Indication: Blood immunoglobulin G decreased
  3. CASPOFUNGIN [Suspect]
     Active Substance: CASPOFUNGIN
     Indication: Fungal infection
     Dosage: UNK
     Route: 065
  4. AMPHOTERICIN B [Suspect]
     Active Substance: AMPHOTERICIN B
     Indication: Fungal infection
     Dosage: 3 MILLIGRAM/KILOGRAM
     Route: 065

REACTIONS (1)
  - Drug ineffective [Unknown]
